FAERS Safety Report 4888448-2 (Version None)
Quarter: 2006Q1

REPORT INFORMATION
  Report Type: 
  Country: None (occurrence: None)
  Receive Date: 20060119
  Receipt Date: 20060110
  Transmission Date: 20060701
  Serious: Yes (Other)
  Sender: FDA-Public Use
  Company Number: 2006005656

PATIENT
  Age: 2 Year
  Sex: Female

DRUGS (1)
  1. BENADRYL [Suspect]
     Indication: ACCIDENTAL EXPOSURE
     Dosage: 2 OUNCES ONCE, ORAL
     Route: 048
     Dates: start: 20060110, end: 20060110

REACTIONS (5)
  - ACCIDENTAL DRUG INTAKE BY CHILD [None]
  - DRUG INEFFECTIVE [None]
  - DRY MOUTH [None]
  - HALLUCINATION [None]
  - HEART RATE INCREASED [None]
